FAERS Safety Report 15898844 (Version 1)
Quarter: 2019Q1

REPORT INFORMATION
  Report Type: Spontaneous
  Country: US (occurrence: US)
  Receive Date: 20190128
  Receipt Date: 20190128
  Transmission Date: 20190417
  Serious: No
  Sender: FDA-Public Use
  Company Number: None

PATIENT
  Age: 61 Year
  Sex: Female

DRUGS (1)
  1. GLATIRAMER PFS INJ (12/BOX) [Suspect]
     Active Substance: GLATIRAMER
     Dates: start: 201901

REACTIONS (4)
  - Fine motor skill dysfunction [None]
  - Pain [None]
  - Device malfunction [None]
  - Device breakage [None]

NARRATIVE: CASE EVENT DATE: 20190128
